FAERS Safety Report 7073240-3 (Version None)
Quarter: 2010Q4

REPORT INFORMATION
  Report Type: 
  Country: None (occurrence: None)
  Receive Date: 20101029
  Receipt Date: 20100513
  Transmission Date: 20110411
  Serious: No
  Sender: FDA-Public Use
  Company Number: A0859573A

PATIENT
  Age: 75 Year
  Sex: Male

DRUGS (4)
  1. ADVAIR DISKUS 100/50 [Suspect]
     Indication: EMPHYSEMA
     Dosage: 1PUFF TWICE PER DAY
     Route: 055
  2. FLUTICASONE NASAL SPRAY [Concomitant]
  3. LOVASTATIN [Concomitant]
  4. DIPYRIDAMOL [Concomitant]

REACTIONS (1)
  - HYPERTENSION [None]
